FAERS Safety Report 5380908-3 (Version None)
Quarter: 2007Q3

REPORT INFORMATION
  Report Type: 
  Country: None (occurrence: None)
  Receive Date: 20070702
  Receipt Date: 20060823
  Transmission Date: 20080115
  Serious: Yes (Other)
  Sender: FDA-Public Use
  Company Number: SPV1-2006-00645

PATIENT
  Age: 30 Year
  Sex: Female

DRUGS (2)
  1. PENTASA [Suspect]
     Dosage: 1000 MG DAILY, RECTAL
     Route: 054
     Dates: start: 20050506, end: 20050606
  2. PENTASA [Suspect]
     Dosage: ORAL, ORAL
     Route: 048

REACTIONS (1)
  - MELAENA [None]
